FAERS Safety Report 9782417 (Version 1)
Quarter: 2013Q4

REPORT INFORMATION
  Report Type: Spontaneous
  Country: US (occurrence: US)
  Receive Date: 20131226
  Receipt Date: 20131226
  Transmission Date: 20140711
  Serious: Yes (Other)
  Sender: FDA-Public Use
  Company Number: US-009507513-1312USA010167

PATIENT
  Age: 56 Year
  Sex: Male

DRUGS (3)
  1. VICTRELIS [Suspect]
     Indication: CHRONIC HEPATITIS C
     Dosage: UNK
     Route: 048
     Dates: start: 20131206
  2. PEGASYS [Suspect]
     Indication: CHRONIC HEPATITIS C
     Dosage: 90 MICROGRAM, QW, PRE FILLED SYRINGE
     Route: 058
     Dates: start: 20130814
  3. RIBASPHERE [Suspect]
     Indication: CHRONIC HEPATITIS C
     Dosage: DIVIDED DOSES (1200 MG 1 IN 1 D)
     Route: 048
     Dates: start: 20130814

REACTIONS (5)
  - Platelet count decreased [Unknown]
  - Influenza like illness [Recovered/Resolved]
  - Myalgia [Recovered/Resolved]
  - Insomnia [Unknown]
  - Dysgeusia [Unknown]
